FAERS Safety Report 5773103-7 (Version None)
Quarter: 2008Q2

REPORT INFORMATION
  Report Type: 
  Country: None (occurrence: None)
  Receive Date: 20080603
  Receipt Date: 20080523
  Transmission Date: 20081010
  Serious: Yes (Disabling)
  Sender: FDA-Public Use
  Company Number: 200813667

PATIENT
  Age: 57 Year
  Sex: Male
  Weight: 81.6475 kg

DRUGS (5)
  1. ZEMAIRA [Suspect]
     Indication: ALPHA-1 ANTI-TRYPSIN DEFICIENCY
     Dosage: 60 MG/KG DAILY IV; 60 MG/KG DAILY IV
     Route: 042
     Dates: start: 20080508, end: 20080508
  2. ZEMAIRA [Suspect]
     Indication: ALPHA-1 ANTI-TRYPSIN DEFICIENCY
     Dosage: 60 MG/KG DAILY IV; 60 MG/KG DAILY IV
     Route: 042
     Dates: start: 20040817
  3. ADVAIR DISKUS 100/50 [Concomitant]
  4. SPIRIVA [Concomitant]
  5. KOPENEX [Concomitant]

REACTIONS (5)
  - CHEST PAIN [None]
  - DYSPEPSIA [None]
  - DYSPNOEA [None]
  - FATIGUE [None]
  - MUSCLE SPASMS [None]
